FAERS Safety Report 5956821-7 (Version None)
Quarter: 2008Q4

REPORT INFORMATION
  Report Type: 
  Country: None (occurrence: None)
  Receive Date: 20081118
  Receipt Date: 20081113
  Transmission Date: 20090506
  Serious: Yes (Life-Threatening, Hospitalization)
  Sender: FDA-Public Use
  Company Number: GR-AVENTIS-200820670GDDC

PATIENT
  Age: 62 Year
  Sex: Male
  Weight: 78 kg

DRUGS (4)
  1. DOCETAXEL [Suspect]
     Route: 042
     Dates: start: 20080904, end: 20080904
  2. CISPLATIN [Suspect]
     Route: 042
     Dates: start: 20080904, end: 20080904
  3. TENORETIC 100 [Concomitant]
     Dosage: DOSE QUANTITY: 50
  4. CARDIL                             /00489702/ [Concomitant]
     Dosage: DOSE QUANTITY: 300

REACTIONS (1)
  - RENAL FAILURE ACUTE [None]
